FAERS Safety Report 8184026-0 (Version None)
Quarter: 2012Q1

REPORT INFORMATION
  Report Type: 
  Country: None (occurrence: None)
  Receive Date: 20120305
  Receipt Date: 20120223
  Transmission Date: 20120608
  Serious: Yes (Disabling)
  Sender: FDA-Public Use
  Company Number: PT-ROCHE-1044904

PATIENT
  Sex: Female

DRUGS (4)
  1. XOLAIR [Suspect]
     Indication: PRODUCT USED FOR UNKNOWN INDICATION
     Dates: start: 20110519, end: 20120124
  2. EBASTINE [Concomitant]
  3. SINGULAIR [Concomitant]
  4. FLUTICASONE PROPIONATE/SALMETEROL [Concomitant]

REACTIONS (1)
  - JOINT EFFUSION [None]
